FAERS Safety Report 6195711-4 (Version None)
Quarter: 2009Q2

REPORT INFORMATION
  Report Type: 
  Country: None (occurrence: None)
  Receive Date: 20090520
  Receipt Date: 20080128
  Transmission Date: 20091009
  Serious: Yes (Hospitalization, Other)
  Sender: FDA-Public Use
  Company Number: US-ASTRAZENECA-2006UW07741

PATIENT
  Age: 463 Month
  Sex: Male
  Weight: 124.7 kg

DRUGS (31)
  1. SEROQUEL [Suspect]
     Indication: SCHIZOPHRENIA
     Route: 048
     Dates: start: 19970601, end: 20051201
  2. SEROQUEL [Suspect]
     Dosage: 25-1200 MG
     Route: 048
     Dates: start: 19980730
  3. GLUCOTROL [Concomitant]
     Route: 065
  4. GLUCOPHAGE [Concomitant]
     Dosage: 500 MG EVERYDAY, 850 MG TWO TIMES A DAY
     Route: 048
  5. RISPERDAL [Concomitant]
     Dosage: 2 MG, 3 MG TWO TIMES A DAY, 4 MG TWO TIMES A DAY
     Route: 048
  6. AMARYL [Concomitant]
     Dosage: 2 MG DAILY, 4 MG EVERY MORNING
     Route: 048
  7. ZESTRIL [Concomitant]
     Route: 048
  8. SPIRONOLACTONE [Concomitant]
     Route: 048
  9. VISTARIL [Concomitant]
     Route: 048
  10. SILVADENE [Concomitant]
     Route: 065
  11. HALDOL [Concomitant]
     Dosage: 100 MG EVERYDAY, 150 MG DAILY, 200 MG EVERYDAY
     Route: 048
  12. COGENTIN [Concomitant]
     Dosage: 1 MG TWO TIMES A DAY, 2 MG EVERY DAY
     Route: 048
  13. XALATAN [Concomitant]
     Dosage: 0.05% DROPS TO RIGHT EYE AT BEDTIME
     Route: 065
  14. TOPAMAX [Concomitant]
     Route: 065
  15. GLYBURIDE [Concomitant]
     Route: 065
  16. INDERAL [Concomitant]
     Route: 065
  17. LACTULOSE [Concomitant]
     Dosage: 300 UNITS THREE TIMES A DAY BEFORE MEALS
     Route: 065
  18. TYLENOL [Concomitant]
     Dosage: 650 MG EVERY SIX HOURS, WHEN NEEDED
     Route: 048
  19. LORAZEPAM [Concomitant]
     Indication: AGITATION
     Route: 048
  20. PROZAC [Concomitant]
     Route: 065
  21. NAVANE [Concomitant]
     Route: 065
  22. DEPAKOTE [Concomitant]
     Route: 065
  23. TRAZODONE HCL [Concomitant]
     Route: 065
  24. DIPHENHYDRAMINE HCL [Concomitant]
     Route: 048
  25. ASPIRIN [Concomitant]
     Route: 048
  26. THIAMINE HCL [Concomitant]
     Route: 065
  27. NOVOLIN [Concomitant]
     Route: 065
  28. ZYPREXA [Concomitant]
     Dosage: 3 MG TWO TIMES A DAY, 10 MG AT BEDTIME
     Route: 048
  29. MOTRIN [Concomitant]
     Route: 065
  30. OXYBUTYNIN CHLORIDE [Concomitant]
     Route: 065
  31. NICOTINE [Concomitant]
     Dosage: 21 MG PATCH
     Route: 065

REACTIONS (21)
  - ACUTE PSYCHOSIS [None]
  - ANIMAL BITE [None]
  - BRONCHITIS [None]
  - CELLULITIS [None]
  - CONTUSION [None]
  - DIABETES MELLITUS [None]
  - DIABETIC FOOT INFECTION [None]
  - DIABETIC KETOACIDOSIS [None]
  - ECCHYMOSIS [None]
  - EXCORIATION [None]
  - FALL [None]
  - INCONTINENCE [None]
  - NEUROPATHY PERIPHERAL [None]
  - RHINITIS ALLERGIC [None]
  - SCHIZOPHRENIA, UNDIFFERENTIATED TYPE [None]
  - SINUSITIS [None]
  - SUBSTANCE ABUSE [None]
  - TRAUMATIC HAEMATOMA [None]
  - TRAUMATIC ULCER [None]
  - URINARY TRACT INFECTION [None]
  - UROSEPSIS [None]
